FAERS Safety Report 5349826-0 (Version None)
Quarter: 2007Q2

REPORT INFORMATION
  Report Type: 
  Country: None (occurrence: None)
  Receive Date: 20070607
  Receipt Date: 20070531
  Transmission Date: 20071010
  Serious: Yes (Other)
  Sender: FDA-Public Use
  Company Number: BR-PFIZER INC-2007037267

PATIENT
  Sex: Male
  Weight: 92 kg

DRUGS (2)
  1. CELEBRA [Suspect]
     Indication: OSTEOARTHRITIS
     Route: 048
     Dates: start: 20070506, end: 20070507
  2. UNOPROST [Concomitant]
     Route: 048

REACTIONS (3)
  - COUGH [None]
  - LABYRINTHITIS [None]
  - PROSTATIC DISORDER [None]
